FAERS Safety Report 19046788 (Version 4)
Quarter: 2021Q3

REPORT INFORMATION
  Report Type: Spontaneous
  Country: US (occurrence: US)
  Receive Date: 20210323
  Receipt Date: 20210810
  Transmission Date: 20211014
  Serious: No
  Sender: FDA-Public Use
  Company Number: US-PFIZER INC-2021235493

PATIENT
  Age: 74 Year
  Sex: Male

DRUGS (3)
  1. INLYTA [Suspect]
     Active Substance: AXITINIB
     Indication: METASTATIC RENAL CELL CARCINOMA
     Dosage: 5 MG
  2. INLYTA [Suspect]
     Active Substance: AXITINIB
     Dosage: 2 MG, 2X/DAY
  3. INLYTA [Suspect]
     Active Substance: AXITINIB
     Dosage: 1 MG, DAILY (TAKE TWO INLYTA 3MG (2 MG TOTAL DOSE) BY MOUTH DAILY)
     Route: 048

REACTIONS (9)
  - Hypophagia [Unknown]
  - Respiration abnormal [Unknown]
  - Fatigue [Unknown]
  - Arthritis [Unknown]
  - Dyspnoea [Unknown]
  - Nausea [Unknown]
  - Mucosal inflammation [Unknown]
  - Toxicity to various agents [Unknown]
  - Neoplasm progression [Unknown]

NARRATIVE: CASE EVENT DATE: 2021
